FAERS Safety Report 23721020 (Version 1)
Quarter: 2024Q2

REPORT INFORMATION
  Report Type: Spontaneous
  Country: US (occurrence: US)
  Receive Date: 20240409
  Receipt Date: 20240409
  Transmission Date: 20240716
  Serious: Yes (Hospitalization)
  Sender: FDA-Public Use
  Company Number: US-BRISTOL-MYERS SQUIBB COMPANY-2024-054659

PATIENT
  Age: 6 Year
  Sex: Female

DRUGS (6)
  1. ORENCIA [Suspect]
     Active Substance: ABATACEPT
     Indication: Autoimmune haemolytic anaemia
     Route: 042
     Dates: start: 202308
  2. ORENCIA [Suspect]
     Active Substance: ABATACEPT
     Indication: Autoimmune lymphoproliferative syndrome
  3. STERILE WATER [Concomitant]
     Active Substance: WATER
     Indication: Product used for unknown indication
     Dosage: 10 ML/VL
  4. SODIUM CHLORIDE [Concomitant]
     Active Substance: SODIUM CHLORIDE
     Indication: Product used for unknown indication
     Dosage: 100 ML / BAG
  5. SALINE [AMMONIUM ACETATE;CINNAMOMUM CAMPHORA EXTRACT;SODIUM CITRATE;SO [Concomitant]
     Indication: Product used for unknown indication
     Dosage: 100 ML / BAG
  6. EPINEPHRINE [Concomitant]
     Active Substance: EPINEPHRINE
     Indication: Product used for unknown indication
     Dosage: AUTOINJ

REACTIONS (2)
  - Hospitalisation [Unknown]
  - Off label use [Unknown]
